FAERS Safety Report 6196826-7 (Version None)
Quarter: 2009Q2

REPORT INFORMATION
  Report Type: 
  Country: None (occurrence: None)
  Receive Date: 20090520
  Receipt Date: 20090511
  Transmission Date: 20091009
  Serious: Yes (Hospitalization)
  Sender: FDA-Public Use
  Company Number: US-WATSON-2009-03361

PATIENT
  Age: 56 Year
  Sex: Male

DRUGS (5)
  1. CARVEDILOL (WATSON LABORATORIES) [Suspect]
     Indication: CARDIAC FAILURE
     Dosage: 12.5 MG, BID
  2. CYCLOSPORINE [Suspect]
     Indication: PROPHYLAXIS AGAINST TRANSPLANT REJECTION
     Dosage: 75 MG, BID
     Dates: start: 19960101
  3. DILTIA XT (WATSON LABORATORIES) [Suspect]
     Indication: CARDIAC FAILURE
     Dosage: 60 MG, BID
     Route: 048
  4. SIMVASTATIN [Suspect]
     Indication: BLOOD CHOLESTEROL INCREASED
     Dosage: 40 MG, DAILY
  5. RANOLAZINE [Suspect]
     Indication: CARDIAC FAILURE
     Dosage: 500 MG, DAILY

REACTIONS (2)
  - DRUG INTERACTION [None]
  - RHABDOMYOLYSIS [None]
